FAERS Safety Report 4975163-X (Version None)
Quarter: 2006Q2

REPORT INFORMATION
  Report Type: 
  Country: None (occurrence: None)
  Receive Date: 20060417
  Receipt Date: 20060417
  Transmission Date: 20061013
  Serious: Yes (Disabling, Other)
  Sender: FDA-Public Use
  Company Number: None

PATIENT
  Sex: Male
  Weight: 32.659 kg

DRUGS (1)
  1. SINGULAIR [Suspect]
     Indication: ASTHMA
     Dosage: 5MG   ONCE DAILY   PO
     Route: 048
     Dates: start: 20060202, end: 20060414

REACTIONS (1)
  - BENIGN INTRACRANIAL HYPERTENSION [None]
